FAERS Safety Report 6019604-8 (Version None)
Quarter: 2008Q4

REPORT INFORMATION
  Report Type: 
  Country: None (occurrence: None)
  Receive Date: 20081224
  Receipt Date: 20081222
  Transmission Date: 20090506
  Serious: Yes (Death)
  Sender: FDA-Public Use
  Company Number: PHEH2008US11346

PATIENT
  Sex: Female

DRUGS (2)
  1. DIOVAN [Suspect]
     Dosage: UNK, UNK
  2. DIURETICS [Interacting]
     Dosage: UNK, UNK

REACTIONS (5)
  - BLOOD GLUCOSE DECREASED [None]
  - FLUID RETENTION [None]
  - HEPATIC CIRRHOSIS [None]
  - HEPATIC FAILURE [None]
  - RED BLOOD CELL COUNT DECREASED [None]
